FAERS Safety Report 8349303-9 (Version None)
Quarter: 2012Q2

REPORT INFORMATION
  Report Type: 
  Country: None (occurrence: None)
  Receive Date: 20120510
  Receipt Date: 20120503
  Transmission Date: 20120825
  Serious: Yes (Death)
  Sender: FDA-Public Use
  Company Number: ES-BAYER-2012-028868

PATIENT
  Age: 65 Year
  Sex: Male

DRUGS (9)
  1. PROPRANOLOL HYDROCHLORIDE [Concomitant]
     Indication: GASTROOESOPHAGEAL VARICEAL HAEMORRHAGE PROPHYLAXIS
     Dosage: DAILY DOSE 10 MG
     Route: 048
     Dates: start: 20040909
  2. PROPRANOLOL HYDROCHLORIDE [Concomitant]
     Indication: CARDIOVASCULAR EVENT PROPHYLAXIS
  3. CLOBETASOL PROPIONATE [Concomitant]
     Indication: PRURITUS
     Dosage: DAILY DOSE 15 G
     Route: 061
     Dates: start: 20110704
  4. GLIMEPIRIDE [Concomitant]
     Indication: DIABETES MELLITUS
     Dosage: DAILY DOSE 4 MG
     Route: 048
     Dates: start: 20100406
  5. LANSOPRAZOLE [Concomitant]
     Indication: GASTROOESOPHAGEAL REFLUX DISEASE
     Dosage: DAILY DOSE 30 MG
     Route: 048
     Dates: start: 20110228
  6. ANTIHISTAMINES [Concomitant]
     Indication: PRURITUS
     Dosage: DAILY DOSE 20 MG
     Route: 048
     Dates: start: 20110704
  7. ALDACTONE [Concomitant]
     Indication: ASCITES
     Dosage: DAILY DOSE 100 MG
     Route: 048
     Dates: start: 20040602
  8. SORAFENIB (RAF KINASE INHIBITOR) [Suspect]
     Indication: HEPATIC NEOPLASM MALIGNANT
     Dosage: DAILY DOSE 800 MG
     Route: 048
     Dates: start: 20110404
  9. OLMESARTAN MEDOXOMIL [Concomitant]
     Indication: HYPERTENSION
     Dosage: DAILY DOSE 10 MG
     Route: 048
     Dates: start: 20110427

REACTIONS (2)
  - MYOCARDIAL INFARCTION [None]
  - MYOCARDIAL ISCHAEMIA [None]
